FAERS Safety Report 16405215 (Version 1)
Quarter: 2019Q2

REPORT INFORMATION
  Report Type: Spontaneous
  Country: US (occurrence: US)
  Receive Date: 20190607
  Receipt Date: 20190607
  Transmission Date: 20190711
  Serious: No
  Sender: FDA-Public Use
  Company Number: US-GLAXOSMITHKLINE-US2019100823

PATIENT
  Age: 72 Year
  Sex: Male

DRUGS (2)
  1. SENSODYNE PRONAMEL DAILY PROTECTION [Suspect]
     Active Substance: POTASSIUM NITRATE\SODIUM FLUORIDE
     Indication: HYPERAESTHESIA TEETH
     Dosage: UNK, TID
     Route: 004
     Dates: start: 201905
  2. ABREVA [Suspect]
     Active Substance: DOCOSANOL
     Indication: ORAL HERPES
     Dosage: 3 OR 4 DAYS

REACTIONS (4)
  - Wrong technique in product usage process [Unknown]
  - Expired product administered [Unknown]
  - Drug ineffective [Unknown]
  - Incorrect product administration duration [Unknown]
